FAERS Safety Report 24224880 (Version 1)
Quarter: 2024Q3

REPORT INFORMATION
  Report Type: Spontaneous
  Country: HU (occurrence: DE)
  Receive Date: 20240819
  Receipt Date: 20240819
  Transmission Date: 20241017
  Serious: Yes (Hospitalization)
  Sender: SUNOVION
  Company Number: DE-RICHTER-2024-GR-008506

PATIENT

DRUGS (1)
  1. ESTRADIOL\NORETHINDRONE ACETATE\RELUGOLIX [Suspect]
     Active Substance: ESTRADIOL\NORETHINDRONE ACETATE\RELUGOLIX
     Indication: Endometriosis
     Dosage: 1 TABLET PER DAY
     Route: 048
     Dates: start: 202403, end: 202404

REACTIONS (2)
  - Endometriosis [Recovered/Resolved]
  - Condition aggravated [Recovered/Resolved]

NARRATIVE: CASE EVENT DATE: 20240401
